FAERS Safety Report 6146085-6 (Version None)
Quarter: 2009Q2

REPORT INFORMATION
  Report Type: 
  Country: None (occurrence: None)
  Receive Date: 20090407
  Receipt Date: 20090407
  Transmission Date: 20091009
  Serious: Yes (Other)
  Sender: FDA-Public Use
  Company Number: US-PFIZER INC-2008150208

PATIENT
  Sex: Male

DRUGS (2)
  1. TIKOSYN [Suspect]
  2. COUMADIN [Concomitant]

REACTIONS (2)
  - HAEMATURIA [None]
  - RENAL CELL CARCINOMA [None]
